FAERS Safety Report 23775678 (Version 2)
Quarter: 2024Q2

REPORT INFORMATION
  Report Type: Spontaneous
  Country: US (occurrence: US)
  Receive Date: 20240423
  Receipt Date: 20240426
  Transmission Date: 20240716
  Serious: No
  Sender: FDA-Public Use
  Company Number: US-AMGEN-USASP2024081223

PATIENT
  Age: 36 Year
  Sex: Female

DRUGS (2)
  1. AIMOVIG [Suspect]
     Active Substance: ERENUMAB-AOOE
     Indication: Migraine prophylaxis
     Dosage: 140 MILLIGRAM, QMO
     Route: 065
     Dates: start: 202312
  2. AIMOVIG [Suspect]
     Active Substance: ERENUMAB-AOOE
     Dosage: 140 MILLIGRAM, QMO
     Route: 065
     Dates: start: 202312

REACTIONS (6)
  - Device difficult to use [Unknown]
  - Wrong technique in product usage process [Unknown]
  - Nervousness [Unknown]
  - Injection site induration [Unknown]
  - Drug dose omission by device [Unknown]
  - Injection site pain [Unknown]

NARRATIVE: CASE EVENT DATE: 20240419
